FAERS Safety Report 4674022-X (Version None)
Quarter: 2005Q2

REPORT INFORMATION
  Report Type: 
  Country: None (occurrence: None)
  Receive Date: 20050525
  Receipt Date: 20050511
  Transmission Date: 20051028
  Serious: Yes (Hospitalization)
  Sender: FDA-Public Use
  Company Number: 046-0981-M000001

PATIENT
  Age: 58 Year
  Sex: Male
  Weight: 90 kg

DRUGS (8)
  1. ATORVASTATIN CALCIUM [Suspect]
     Indication: CORONARY ARTERY DISEASE
     Dosage: 80 MG DAILY, ORAL
     Route: 048
     Dates: start: 19991209
  2. CITALOPRAM HYDROBROMIDE [Concomitant]
  3. ASPIRIN [Concomitant]
  4. METOPROLOL TARTRATE [Concomitant]
  5. ACETAMINOPHEN [Concomitant]
  6. TRAMADOL HCL [Concomitant]
  7. NITROMEX (GLYCERYL TRINITRATE) [Concomitant]
  8. ACETYLSALICYLIC ACID SRT [Concomitant]

REACTIONS (4)
  - CONDITION AGGRAVATED [None]
  - INTERVERTEBRAL DISC PROTRUSION [None]
  - PAIN IN EXTREMITY [None]
  - SPINAL OSTEOARTHRITIS [None]
